FAERS Safety Report 16644752 (Version 5)
Quarter: 2019Q4

REPORT INFORMATION
  Report Type: Spontaneous
  Country: US (occurrence: US)
  Receive Date: 20190729
  Receipt Date: 20191202
  Transmission Date: 20200122
  Serious: Yes (Other)
  Sender: FDA-Public Use
  Company Number: US-MALLINCKRODT-T201905101

PATIENT
  Sex: Female

DRUGS (9)
  1. TALTZ [Concomitant]
     Active Substance: IXEKIZUMAB
     Indication: PRODUCT USED FOR UNKNOWN INDICATION
     Dosage: UNK
     Route: 065
  2. PREDNISONE. [Concomitant]
     Active Substance: PREDNISONE
     Indication: PRODUCT USED FOR UNKNOWN INDICATION
     Dosage: UNK 12 DAY REGIMEN (6O MG 1ST AND 2ND DAY)
     Route: 065
  3. TYLENOL [Concomitant]
     Active Substance: ACETAMINOPHEN
     Indication: PAIN
     Dosage: UNK (EVERY 4 HOURS)
     Route: 065
  4. H.P. ACTHAR [Suspect]
     Active Substance: CORTICOTROPIN
     Dosage: 80 UNITS / 1 ML, EVERY 3 DAYS / EVERY 72 HOURS
     Route: 058
     Dates: start: 201910
  5. POTASSIUM [Concomitant]
     Active Substance: POTASSIUM
     Indication: PRODUCT USED FOR UNKNOWN INDICATION
     Dosage: UNK
     Route: 065
  6. H.P. ACTHAR [Suspect]
     Active Substance: CORTICOTROPIN
     Indication: MULTIPLE SCLEROSIS
     Dosage: 80 UNITS / 1 ML, EVERY 3 DAYS/ EVERY 72 HOURS
     Route: 058
     Dates: start: 20171110
  7. H.P. ACTHAR [Suspect]
     Active Substance: CORTICOTROPIN
     Indication: PSORIATIC ARTHROPATHY
     Dosage: 1 ML, EVERY 3 DAYS
     Route: 058
     Dates: start: 20180103
  8. H.P. ACTHAR [Suspect]
     Active Substance: CORTICOTROPIN
     Dosage: 1 ML, QID
     Route: 058
     Dates: start: 20181102
  9. LASIX [Suspect]
     Active Substance: FUROSEMIDE
     Indication: PERIPHERAL SWELLING
     Dosage: UNK
     Route: 065
     Dates: end: 2019

REACTIONS (15)
  - Muscle spasms [Unknown]
  - Surgery [Not Recovered/Not Resolved]
  - Muscle twitching [Recovering/Resolving]
  - Mobility decreased [Not Recovered/Not Resolved]
  - Rash [Unknown]
  - Peripheral swelling [Unknown]
  - Body height decreased [Unknown]
  - Pain [Recovering/Resolving]
  - Anaemia [Not Recovered/Not Resolved]
  - Cardiac disorder [Not Recovered/Not Resolved]
  - Multiple sclerosis relapse [Unknown]
  - Loss of personal independence in daily activities [Recovering/Resolving]
  - Pollakiuria [Unknown]
  - Weight decreased [Not Recovered/Not Resolved]
  - Decreased appetite [Recovering/Resolving]

NARRATIVE: CASE EVENT DATE: 2019
